FAERS Safety Report 5259514-7 (Version None)
Quarter: 2007Q1

REPORT INFORMATION
  Report Type: 
  Country: None (occurrence: None)
  Receive Date: 20070306
  Receipt Date: 20070221
  Transmission Date: 20070707
  Serious: Yes (Other)
  Sender: FDA-Public Use
  Company Number: 2007US-05702

PATIENT
  Age: 14 Year
  Sex: Female

DRUGS (3)
  1. ISOTRETINOIN [Suspect]
     Indication: ACNE CYSTIC
     Dosage: 30 MG, QD, 20 MG, BID, 40 MG, QD
     Dates: start: 20061116, end: 20061218
  2. ISOTRETINOIN [Suspect]
     Indication: ACNE CYSTIC
     Dosage: 30 MG, QD, 20 MG, BID, 40 MG, QD
     Dates: start: 20060913
  3. ISOTRETINOIN [Suspect]
     Indication: ACNE CYSTIC
     Dosage: 30 MG, QD, 20 MG, BID, 40 MG, QD
     Dates: start: 20061012

REACTIONS (4)
  - BLINDNESS TRANSIENT [None]
  - DISEASE RECURRENCE [None]
  - EYE PAIN [None]
  - MIGRAINE [None]
